FAERS Safety Report 14636825 (Version 1)
Quarter: 2018Q1

REPORT INFORMATION
  Report Type: Spontaneous
  Country: NO (occurrence: NO)
  Receive Date: 20180314
  Receipt Date: 20180314
  Transmission Date: 20180509
  Serious: Yes (Death)
  Sender: FDA-Public Use
  Company Number: NO-ABBVIE-18P-122-2287512-00

PATIENT
  Age: 59 Year
  Sex: Female

DRUGS (1)
  1. VENETOCLAX. [Suspect]
     Active Substance: VENETOCLAX
     Indication: PLASMA CELL MYELOMA
     Route: 048
     Dates: start: 20180107, end: 201801

REACTIONS (3)
  - Bone marrow failure [Fatal]
  - Death [Fatal]
  - Infection [Fatal]

NARRATIVE: CASE EVENT DATE: 201801
